FAERS Safety Report 6263744-5 (Version None)
Quarter: 2009Q3

REPORT INFORMATION
  Report Type: 
  Country: None (occurrence: None)
  Receive Date: 20090710
  Receipt Date: 20090707
  Transmission Date: 20100115
  Serious: Yes (Death)
  Sender: FDA-Public Use
  Company Number: PHEH2009US06053

PATIENT
  Sex: Male
  Weight: 75.147 kg

DRUGS (2)
  1. EXJADE [Suspect]
     Indication: MYELODYSPLASTIC SYNDROME
     Dosage: 1500 MG/DAILY
     Route: 048
     Dates: start: 20090301, end: 20090501
  2. EXJADE [Suspect]
     Indication: IRON OVERLOAD

REACTIONS (1)
  - MALIGNANT NEOPLASM PROGRESSION [None]
